FAERS Safety Report 6760316-0 (Version None)
Quarter: 2010Q2

REPORT INFORMATION
  Report Type: 
  Country: None (occurrence: None)
  Receive Date: 20100608
  Receipt Date: 20100603
  Transmission Date: 20101027
  Serious: Yes (Death)
  Sender: FDA-Public Use
  Company Number: CA-JNJFOC-20100602215

PATIENT

DRUGS (8)
  1. FENTANYL [Suspect]
     Indication: PAIN IN EXTREMITY
     Route: 062
  2. FENTANYL [Suspect]
     Route: 062
  3. FENTANYL [Suspect]
     Indication: BACK PAIN
     Route: 062
  4. FENTANYL [Suspect]
     Route: 062
  5. HYDROMORPHONE HCL [Concomitant]
     Indication: PAIN IN EXTREMITY
     Dosage: 2-4 MG EVERY 4 HOURS AS NEEDED THE DAY
     Route: 048
  6. HYDROMORPHONE HCL [Concomitant]
     Indication: BACK PAIN
     Dosage: 2-4 MG EVERY 4 HOURS AS NEEDED THE DAY
     Route: 048
  7. ACETAMINOPHEN W/ CODEINE TAB [Concomitant]
     Indication: PAIN IN EXTREMITY
     Dosage: ON AN AS NEEDED BASIS
     Route: 065
  8. ACETAMINOPHEN W/ CODEINE TAB [Concomitant]
     Indication: BACK PAIN
     Dosage: ON AN AS NEEDED BASIS
     Route: 065

REACTIONS (4)
  - CONFUSIONAL STATE [None]
  - DEATH [None]
  - DRUG INEFFECTIVE [None]
  - UNRESPONSIVE TO STIMULI [None]
